FAERS Safety Report 7985631-4 (Version None)
Quarter: 2011Q4

REPORT INFORMATION
  Report Type: 
  Country: None (occurrence: None)
  Receive Date: 20111216
  Receipt Date: 20111209
  Transmission Date: 20120403
  Serious: Yes (Hospitalization)
  Sender: FDA-Public Use
  Company Number: IT-BRISTOL-MYERS SQUIBB COMPANY-16253031

PATIENT
  Age: 66 Year
  Sex: Male
  Weight: 62 kg

DRUGS (1)
  1. PACLITAXEL [Suspect]
     Indication: GASTRIC CANCER
     Dosage: DOSAGE: ON DAYS 1,8 AND 15 EVERY 4WKS CYCL LAST DOSE:7NOV11 INTERRUPTED:14NOV11 RESUMED 21NOV11
     Route: 042
     Dates: start: 20111031

REACTIONS (2)
  - NEUTROPENIA [None]
  - ABDOMINAL PAIN [None]
